FAERS Safety Report 24938390 (Version 5)
Quarter: 2025Q2

REPORT INFORMATION
  Report Type: Spontaneous
  Country: US (occurrence: US)
  Receive Date: 20250206
  Receipt Date: 20250409
  Transmission Date: 20250716
  Serious: Yes (Other)
  Sender: SANOFI AVENTIS
  Company Number: US-SA-2025SA034074

PATIENT
  Sex: Female

DRUGS (2)
  1. LANTUS SOLOSTAR [Suspect]
     Active Substance: INSULIN GLARGINE
     Indication: Diabetes mellitus
     Dosage: 20 IU, QD
     Route: 065
     Dates: start: 2022
  2. LANTUS SOLOSTAR [Suspect]
     Active Substance: INSULIN GLARGINE
     Route: 065

REACTIONS (11)
  - Cardiac failure chronic [Unknown]
  - Spinal fracture [Unknown]
  - Multiple fractures [Unknown]
  - Blindness [Recovered/Resolved]
  - Pain [Not Recovered/Not Resolved]
  - Injection site pain [Unknown]
  - Visual impairment [Unknown]
  - Blood glucose increased [Unknown]
  - Device issue [Unknown]
  - Drug ineffective [Unknown]
  - Wrong technique in device usage process [Unknown]

NARRATIVE: CASE EVENT DATE: 20250128
